FAERS Safety Report 5673800-8 (Version None)
Quarter: 2008Q1

REPORT INFORMATION
  Report Type: 
  Country: None (occurrence: None)
  Receive Date: 20080319
  Receipt Date: 20080307
  Transmission Date: 20080703
  Serious: Yes (Other)
  Sender: FDA-Public Use
  Company Number: US-PFIZER INC-2008022480

PATIENT
  Sex: Female
  Weight: 70.454 kg

DRUGS (1)
  1. CHANTIX [Suspect]
     Indication: EX-SMOKER

REACTIONS (3)
  - FEELING ABNORMAL [None]
  - MENTAL IMPAIRMENT [None]
  - MOOD SWINGS [None]
